FAERS Safety Report 8264156-5 (Version None)
Quarter: 2012Q2

REPORT INFORMATION
  Report Type: 
  Country: None (occurrence: None)
  Receive Date: 20120406
  Receipt Date: 20120324
  Transmission Date: 20120825
  Serious: Yes (Hospitalization)
  Sender: FDA-Public Use
  Company Number: PT-PAR PHARMACEUTICAL, INC-2012SCPR004305

PATIENT

DRUGS (6)
  1. DEXAMETHASONE [Suspect]
     Indication: MULTIPLE MYELOMA
     Dosage: 40 MG, / DAY; FOR 4 DAYS OF MONTHLY CYCLE
     Route: 065
     Dates: start: 20100701
  2. LENALIDOMIDE [Suspect]
     Indication: MULTIPLE MYELOMA
     Dosage: 25 MG, / DAY; FOR 21 DAYS OF MONTHLY CYCLE
     Route: 065
     Dates: start: 20100701
  3. ACYCLOVIR [Concomitant]
     Indication: PROPHYLAXIS
     Dosage: 400 MG EVERY 12 HOURS
     Route: 048
  4. LENALIDOMIDE [Suspect]
     Dosage: HALF THE ORIGINAL DOSE
     Route: 065
  5. LENALIDOMIDE [Suspect]
     Dosage: 5 MG/DAY
     Route: 065
  6. ZOLEDRONOC ACID [Concomitant]
     Indication: PROPHYLAXIS
     Dosage: 4 MG, ONCE MONTHLY
     Route: 042

REACTIONS (1)
  - PULMONARY EMBOLISM [None]
